FAERS Safety Report 8208885-8 (Version None)
Quarter: 2012Q1

REPORT INFORMATION
  Report Type: 
  Country: None (occurrence: None)
  Receive Date: 20120314
  Receipt Date: 20120229
  Transmission Date: 20120608
  Serious: Yes (Other)
  Sender: FDA-Public Use
  Company Number: JP-ROCHE-1041477

PATIENT
  Sex: Male

DRUGS (3)
  1. TAMIFLU [Suspect]
     Route: 048
     Dates: start: 20120214
  2. TAMIFLU [Suspect]
     Indication: INFLUENZA
     Route: 048
     Dates: start: 20120213, end: 20120213
  3. ACETAMINOPHEN [Concomitant]
     Indication: PYREXIA
     Dosage: DOSAGE IS UNCERTAIN.TAKEN AS NEEDED.
     Route: 048

REACTIONS (3)
  - HALLUCINATION [None]
  - ABNORMAL BEHAVIOUR [None]
  - INJURY [None]
